FAERS Safety Report 19548354 (Version 1)
Quarter: 2021Q3

REPORT INFORMATION
  Report Type: Spontaneous
  Country: US (occurrence: US)
  Receive Date: 20210714
  Receipt Date: 20210714
  Transmission Date: 20211014
  Serious: Yes (Hospitalization)
  Sender: FDA-Public Use
  Company Number: None

PATIENT
  Age: 42 Year
  Sex: Male

DRUGS (3)
  1. KEYTRUDA [Suspect]
     Active Substance: PEMBROLIZUMAB
     Dosage: ?          OTHER FREQUENCY:OTHER;?
     Route: 042
     Dates: start: 20210604, end: 20210714
  2. LORAZEPAM. [Concomitant]
     Active Substance: LORAZEPAM
  3. EMEND DEXAMETHASONE [Concomitant]

REACTIONS (1)
  - Pain management [None]

NARRATIVE: CASE EVENT DATE: 20210701
